FAERS Safety Report 23601356 (Version 2)
Quarter: 2024Q4

REPORT INFORMATION
  Report Type: Report from Study
  Country: ES (occurrence: ES)
  Receive Date: 20240306
  Receipt Date: 20241213
  Transmission Date: 20250115
  Serious: Yes (Other)
  Sender: SK LIFE SCIENCE
  Company Number: ES-ACRAF SpA-2024-033414

PATIENT

DRUGS (14)
  1. XCOPRI [Suspect]
     Active Substance: CENOBAMATE
     Indication: Epilepsy
     Dosage: 100 MILLIGRAM, QD (100 MG,1 D)
     Route: 048
     Dates: start: 20240116
  2. XCOPRI [Suspect]
     Active Substance: CENOBAMATE
     Dosage: 250 MILLIGRAM
     Route: 048
     Dates: start: 20240913
  3. VIMPAT [Concomitant]
     Active Substance: LACOSAMIDE
     Indication: Epilepsy
     Dosage: 1-0-1 (200 MG)
     Route: 065
     Dates: start: 20130202, end: 20240130
  4. VIMPAT [Concomitant]
     Active Substance: LACOSAMIDE
     Dosage: UNK
     Route: 065
     Dates: start: 20240130, end: 20240912
  5. VIMPAT [Concomitant]
     Active Substance: LACOSAMIDE
     Dosage: UNK
     Route: 065
     Dates: start: 20240229, end: 20240307
  6. VIMPAT [Concomitant]
     Active Substance: LACOSAMIDE
     Dosage: UNK
     Route: 065
     Dates: start: 20240229, end: 20240307
  7. VIMPAT [Concomitant]
     Active Substance: LACOSAMIDE
     Dosage: UNK
     Route: 065
     Dates: start: 20240308, end: 20240605
  8. VIMPAT [Concomitant]
     Active Substance: LACOSAMIDE
     Dosage: UNK
     Route: 065
     Dates: start: 20240606
  9. VIMPAT [Concomitant]
     Active Substance: LACOSAMIDE
     Dosage: UNK
     Route: 065
     Dates: start: 20240606
  10. KEPPRA [Concomitant]
     Active Substance: LEVETIRACETAM
     Indication: Epilepsy
     Dosage: 1-0-1 (1500 MG)
     Route: 065
     Dates: start: 20140113
  11. KEPPRA [Concomitant]
     Active Substance: LEVETIRACETAM
     Dosage: UNK
     Route: 065
     Dates: start: 20240913
  12. CITALOPRAM [Concomitant]
     Active Substance: CITALOPRAM
     Indication: Depression
     Dosage: UNK
     Route: 065
     Dates: start: 20150202, end: 20240606
  13. CITALOPRAM [Concomitant]
     Active Substance: CITALOPRAM
     Dosage: UNK
     Route: 065
     Dates: start: 20240606, end: 20240913
  14. CITALOPRAM [Concomitant]
     Active Substance: CITALOPRAM
     Dosage: 5 MILLIGRAM
     Route: 065
     Dates: start: 20240913

REACTIONS (3)
  - Thrombocytopenia [Unknown]
  - Somnolence [Not Recovered/Not Resolved]
  - Rash [Recovered/Resolved]

NARRATIVE: CASE EVENT DATE: 20240117
